FAERS Safety Report 15399625 (Version 1)
Quarter: 2018Q3

REPORT INFORMATION
  Report Type: Spontaneous
  Country: AU (occurrence: AU)
  Receive Date: 20180918
  Receipt Date: 20180918
  Transmission Date: 20181010
  Serious: Yes (Other)
  Sender: FDA-Public Use
  Company Number: AU-TAKEDA-2018TUS027479

PATIENT
  Age: 29 Year
  Sex: Male

DRUGS (2)
  1. BRINTELLIX [Suspect]
     Active Substance: VORTIOXETINE HYDROBROMIDE
     Indication: PRODUCT USED FOR UNKNOWN INDICATION
     Dosage: 5 MG, UNK
     Route: 065
     Dates: start: 20180812
  2. BRINTELLIX [Suspect]
     Active Substance: VORTIOXETINE HYDROBROMIDE
     Dosage: 10 MG, UNK
     Route: 065

REACTIONS (5)
  - Vasculitis [Recovering/Resolving]
  - Suicidal ideation [Recovering/Resolving]
  - Pruritus [Recovering/Resolving]
  - Oedema peripheral [Recovering/Resolving]
  - Aggression [Recovering/Resolving]
